FAERS Safety Report 4380663-X (Version None)
Quarter: 2004Q2

REPORT INFORMATION
  Report Type: 
  Country: None (occurrence: None)
  Receive Date: 20040618
  Receipt Date: 20040608
  Transmission Date: 20050107
  Serious: Yes (Other)
  Sender: FDA-Public Use
  Company Number: DE-ROCHE-370721

PATIENT

DRUGS (2)
  1. PEGASYS [Suspect]
     Route: 058
     Dates: start: 20040215
  2. REBETOL [Suspect]
     Route: 048
     Dates: start: 20040215

REACTIONS (2)
  - PANCYTOPENIA [None]
  - PERITONEAL DIALYSIS [None]
